FAERS Safety Report 5039025-4 (Version None)
Quarter: 2006Q2

REPORT INFORMATION
  Report Type: 
  Country: None (occurrence: None)
  Receive Date: 20060601
  Receipt Date: 20060321
  Transmission Date: 20061013
  Serious: No
  Sender: FDA-Public Use
  Company Number: 2005PV001689

PATIENT
  Age: 63 Year
  Sex: Female
  Weight: 102.9665 kg

DRUGS (12)
  1. BYETTA [Suspect]
     Indication: DIABETES MELLITUS NON-INSULIN-DEPENDENT
     Dosage: SEE IMAGE
     Route: 058
     Dates: start: 20050802, end: 20051201
  2. BYETTA [Suspect]
     Indication: DIABETES MELLITUS NON-INSULIN-DEPENDENT
     Dosage: SEE IMAGE
     Route: 058
     Dates: start: 20051201
  3. METFORMIN [Concomitant]
  4. GLYBURIDE AND METFORMIN HCL [Concomitant]
  5. DIOVAN [Concomitant]
  6. HYDROCHLOROTHIAZIDE [Concomitant]
  7. INSPRA [Concomitant]
  8. ASCORBIC ACID [Concomitant]
  9. OSTEO 7 [Concomitant]
  10. GLUCOVANCE [Concomitant]
  11. STOOL SOFTENER [Concomitant]
  12. CORTISONE [Concomitant]

REACTIONS (7)
  - ANAL FISSURE [None]
  - CONSTIPATION [None]
  - DRY SKIN [None]
  - HAEMATOCHEZIA [None]
  - NAUSEA [None]
  - PRURITUS [None]
  - WEIGHT DECREASED [None]
